FAERS Safety Report 7226198-8 (Version None)
Quarter: 2011Q1

REPORT INFORMATION
  Report Type: 
  Country: None (occurrence: None)
  Receive Date: 20110114
  Receipt Date: 20101230
  Transmission Date: 20110831
  Serious: Yes (Other)
  Sender: FDA-Public Use
  Company Number: PHHY2010US89853

PATIENT
  Age: 55 Year
  Sex: Male

DRUGS (3)
  1. PREDNISONE [Suspect]
  2. MYCOPHENOLIC ACID [Suspect]
     Dosage: 540 MG, BID
  3. TACROLIMUS [Suspect]

REACTIONS (6)
  - HYPOALBUMINAEMIA [None]
  - FREQUENT BOWEL MOVEMENTS [None]
  - ANAEMIA [None]
  - HYPERGLYCAEMIA [None]
  - METABOLIC ACIDOSIS [None]
  - DIARRHOEA [None]
